FAERS Safety Report 5479240-9 (Version None)
Quarter: 2007Q4

REPORT INFORMATION
  Report Type: 
  Country: None (occurrence: None)
  Receive Date: 20071008
  Receipt Date: 20071004
  Transmission Date: 20080405
  Serious: Yes (Life-Threatening, Hospitalization, Disabling)
  Sender: FDA-Public Use
  Company Number: PHNR2007AU01899

PATIENT
  Age: 53 Year
  Sex: Male

DRUGS (2)
  1. TEGRETOL [Suspect]
     Indication: CONVULSION
     Dosage: 400 MG IN THE MORNING AND 300 MG AT NIGHT
     Dates: start: 19820101
  2. IRBESARTAN AND HYDROCHLOROTHIAZIDE [Suspect]
     Indication: BLOOD PRESSURE
     Dates: start: 20070101

REACTIONS (4)
  - BLOOD SODIUM DECREASED [None]
  - CONVULSION [None]
  - DRUG INTERACTION [None]
  - NERVOUS SYSTEM SURGERY [None]
